FAERS Safety Report 12311104 (Version 1)
Quarter: 2016Q2

REPORT INFORMATION
  Report Type: Spontaneous
  Country: US (occurrence: US)
  Receive Date: 20160427
  Receipt Date: 20160427
  Transmission Date: 20160815
  Serious: No
  Sender: FDA-Public Use
  Company Number: US-BAYER-2016-074931

PATIENT
  Age: 58 Year
  Sex: Male

DRUGS (1)
  1. XOFIGO [Suspect]
     Active Substance: RADIUM RA-223 DICHLORIDE
     Indication: HORMONE-REFRACTORY PROSTATE CANCER
     Dosage: 168.8 ?CI, Q1MON (FIRST DOSE)
     Dates: start: 20160415

REACTIONS (2)
  - Hypoaesthesia [None]
  - Swelling [None]

NARRATIVE: CASE EVENT DATE: 20160415
